FAERS Safety Report 25285212 (Version 2)
Quarter: 2025Q4

REPORT INFORMATION
  Report Type: Spontaneous
  Country: US (occurrence: US)
  Receive Date: 20250509
  Receipt Date: 20251113
  Transmission Date: 20260118
  Serious: No
  Sender: TEVA
  Company Number: US-ABBVIE-6161500

PATIENT
  Age: 89 Year
  Sex: Female

DRUGS (5)
  1. OXYTROL [Suspect]
     Active Substance: OXYBUTYNIN
     Indication: Hypertonic bladder
     Dosage: OXYTROL FOR WOMEN
     Route: 065
  2. OXYTROL [Suspect]
     Active Substance: OXYBUTYNIN
     Indication: Hypertonic bladder
     Dosage: FORM STRENGHT:3.9MG/DAY; OXYTROL FOR WOMEN
     Route: 062
  3. MODERNA COVID-19 VACCINE [Suspect]
     Active Substance: ELASOMERAN
     Indication: COVID-19
     Route: 030
  4. QULIPTA [Suspect]
     Active Substance: ATOGEPANT
     Indication: Migraine
     Dosage: FORM STRENGTH: 50 MG
     Route: 048
     Dates: start: 202503
  5. UBRELVY [Suspect]
     Active Substance: UBROGEPANT
     Indication: Migraine
     Dosage: FORM STRENGTH: 30 MG
     Route: 048
     Dates: start: 202501, end: 2025

REACTIONS (8)
  - Rash [Unknown]
  - Constipation [Recovered/Resolved]
  - Migraine [Not Recovered/Not Resolved]
  - Rash papular [Not Recovered/Not Resolved]
  - Intentional product misuse [Unknown]
  - Drug ineffective [Unknown]
  - Pruritus [Not Recovered/Not Resolved]
  - Off label use [Unknown]

NARRATIVE: CASE EVENT DATE: 20250101
